FAERS Safety Report 18475237 (Version 1)
Quarter: 2020Q4

REPORT INFORMATION
  Report Type: Report from Study
  Country: DE (occurrence: DE)
  Receive Date: 20201106
  Receipt Date: 20201106
  Transmission Date: 20210114
  Serious: Yes (Death, Other)
  Sender: FDA-Public Use
  Company Number: DE-ASTRAZENECA-2020SF45381

PATIENT
  Age: 56 Year
  Sex: Female

DRUGS (1)
  1. OLAPARIB. [Suspect]
     Active Substance: OLAPARIB
     Indication: BREAST CANCER METASTATIC
     Dosage: DURATION OF DRUG ADMINISTRATION: 3 MONTHS, FROMULATION: CAPSULE
     Route: 048
     Dates: start: 2018, end: 2018

REACTIONS (2)
  - Fatigue [Unknown]
  - Breast cancer metastatic [Fatal]

NARRATIVE: CASE EVENT DATE: 2018
